FAERS Safety Report 8102036-6 (Version None)
Quarter: 2012Q1

REPORT INFORMATION
  Report Type: 
  Country: None (occurrence: None)
  Receive Date: 20120131
  Receipt Date: 20120124
  Transmission Date: 20120608
  Serious: Yes (Life-Threatening)
  Sender: FDA-Public Use
  Company Number: US-ABBOTT-11P-163-0725767-00

PATIENT
  Sex: Male

DRUGS (3)
  1. HUMIRA [Suspect]
     Indication: PSORIASIS
     Route: 058
     Dates: start: 20100722
  2. HUMIRA [Suspect]
  3. COMMERCIAL HUMIRA [Concomitant]
     Indication: PSORIASIS
     Route: 058
     Dates: start: 20090410

REACTIONS (1)
  - MYOCARDIAL INFARCTION [None]
